FAERS Safety Report 12517258 (Version 1)
Quarter: 2016Q2

REPORT INFORMATION
  Report Type: Spontaneous
  Country: SE (occurrence: SE)
  Receive Date: 20160630
  Receipt Date: 20160630
  Transmission Date: 20160815
  Serious: Yes (Life-Threatening, Disabling, Other)
  Sender: FDA-Public Use
  Company Number: SE-PFIZER INC-2016321796

PATIENT
  Age: 50 Year
  Sex: Female

DRUGS (18)
  1. SERTRALINE HCL [Suspect]
     Active Substance: SERTRALINE HYDROCHLORIDE
     Indication: DEPRESSION
     Dosage: 1 TABLET IN THE MORNING
     Route: 048
     Dates: start: 20160517, end: 20160605
  2. PRAMIPEXOLE. [Interacting]
     Active Substance: PRAMIPEXOLE
     Indication: PARKINSON^S DISEASE
     Dosage: 3 TABLETS DAILY
     Dates: start: 201411, end: 20151130
  3. KALEORID [Concomitant]
     Active Substance: POTASSIUM CHLORIDE
     Dosage: UNK
  4. OMEPRAZOLE. [Interacting]
     Active Substance: OMEPRAZOLE
     Dosage: UNK
  5. SELEGILINE [Interacting]
     Active Substance: SELEGILINE
     Indication: PARKINSON^S DISEASE
     Dosage: 10 MG, 1X/DAY
     Route: 048
     Dates: start: 20121103, end: 20160601
  6. HYDROCHLOROTHIAZIDE. [Interacting]
     Active Substance: HYDROCHLOROTHIAZIDE
     Indication: OEDEMA PERIPHERAL
     Dosage: UNK
     Dates: start: 2009, end: 20160108
  7. OPRYMEA [Interacting]
     Active Substance: PRAMIPEXOLE DIHYDROCHLORIDE
     Indication: PARKINSON^S DISEASE
     Dosage: UNK
     Dates: start: 20151130, end: 20160408
  8. ORALOVITE [Interacting]
     Active Substance: ASCORBIC ACID\NIACINAMIDE\PYRIDOXINE\RIBOFLAVIN\THIAMINE
     Indication: DOPAMINERGIC DRUG THERAPY
     Dosage: 3 DF, DAILY
     Route: 048
     Dates: start: 20151130, end: 20160606
  9. DEVITRE [Interacting]
     Active Substance: CHOLECALCIFEROL
     Indication: VITAMIN D DEFICIENCY
     Dosage: 2 TABLETS DAILY
     Dates: end: 20160607
  10. DUODOPA [Interacting]
     Active Substance: CARBIDOPA\LEVODOPA
     Indication: PARKINSON^S DISEASE
     Dosage: UNK
     Dates: start: 20151130
  11. SERTRALINE HCL [Interacting]
     Active Substance: SERTRALINE HYDROCHLORIDE
     Indication: ANXIETY
  12. MIRTAZAPINE. [Interacting]
     Active Substance: MIRTAZAPINE
     Dosage: 2 DF, UNK
     Route: 048
     Dates: start: 20150324, end: 20160605
  13. LASIX [Interacting]
     Active Substance: FUROSEMIDE
     Indication: OEDEMA PERIPHERAL
     Dosage: UNK, AS NEEDED
  14. BEHEPAN /00056201/ [Concomitant]
     Active Substance: CYANOCOBALAMIN
     Dosage: UNK
  15. VITAMIN D /00107901/ [Concomitant]
     Active Substance: ERGOCALCIFEROL
     Dosage: UNK
  16. FOLACIN [Interacting]
     Active Substance: FOLIC ACID
     Indication: DOPAMINERGIC DRUG THERAPY
     Dosage: UNK
  17. SINEMET [Interacting]
     Active Substance: CARBIDOPA\LEVODOPA
     Indication: PARKINSON^S DISEASE
     Dosage: 2 TABLETS AT NIGHT
     Route: 048
     Dates: start: 20121103
  18. BETOLVIDON [Interacting]
     Active Substance: CYANOCOBALAMIN
     Indication: DOPAMINERGIC DRUG THERAPY
     Dosage: 1 DF, DAILY
     Dates: start: 20151130, end: 20160606

REACTIONS (18)
  - Hypomagnesaemia [Recovered/Resolved]
  - Hunger [Unknown]
  - Neuroleptic malignant syndrome [Recovered/Resolved]
  - Hyponatraemia [Recovered/Resolved]
  - Temperature regulation disorder [Unknown]
  - Dyspnoea [Unknown]
  - Respiratory disorder [Unknown]
  - Drug interaction [Recovered/Resolved]
  - Rhabdomyolysis [Recovered/Resolved]
  - Feeling abnormal [Unknown]
  - Oedema peripheral [Unknown]
  - Toxicity to various agents [Recovered/Resolved]
  - Panic attack [Unknown]
  - Anxiety [Unknown]
  - Myalgia [Unknown]
  - Depression [Unknown]
  - Hyperhidrosis [Unknown]
  - Feeling hot [Unknown]

NARRATIVE: CASE EVENT DATE: 20121103
